FAERS Safety Report 12640479 (Version 3)
Quarter: 2022Q4

REPORT INFORMATION
  Report Type: Spontaneous
  Country: FR (occurrence: FR)
  Receive Date: 20160810
  Receipt Date: 20221124
  Transmission Date: 20230113
  Serious: Yes (Hospitalization)
  Sender: FDA-Public Use
  Company Number: FR-PFIZER INC-2016371969

PATIENT
  Age: 36 Year
  Sex: Female
  Weight: 47 kg

DRUGS (2)
  1. PACLITAXEL [Suspect]
     Active Substance: PACLITAXEL
     Indication: Breast cancer
     Dosage: 80 MG/M2, (OR 94 MG)
     Dates: start: 201606, end: 20160712
  2. HERCEPTIN [Concomitant]
     Active Substance: TRASTUZUMAB
     Indication: Breast cancer
     Dosage: 2 MG/KG, UNK

REACTIONS (2)
  - Skin lesion [Recovered/Resolved]
  - Oedema peripheral [Recovering/Resolving]

NARRATIVE: CASE EVENT DATE: 20160601
